FAERS Safety Report 6679625 (Version 15)
Quarter: 2013Q1

REPORT INFORMATION
  Report Type: Spontaneous
  Country: US (occurrence: US)
  Receive Date: 20080624
  Receipt Date: 20130102
  Transmission Date: 20140127
  Serious: Yes (Hospitalization, Congenital Anomaly, Other)
  Sender: FDA-Public Use
  Company Number: US-PFIZER INC-2008049844

PATIENT
  Sex: Female
  Weight: 3 kg

DRUGS (6)
  1. ZOLOFT [Suspect]
     Indication: PANIC DISORDER
     Dosage: UNK
     Route: 064
     Dates: start: 1996, end: 1997
  2. ZOLOFT [Suspect]
     Indication: DEPRESSION
     Dosage: 25 MG, 1X/DAY
     Route: 064
     Dates: start: 19990729
  3. MACROBID [Concomitant]
     Dosage: UNK
     Route: 064
  4. PAXIL [Concomitant]
     Dosage: UNK
     Route: 064
  5. FLINTSTONE VITAMINS W/IRON [Concomitant]
     Dosage: UNK
     Route: 064
  6. TYLENOL [Concomitant]
     Dosage: UNK
     Route: 064

REACTIONS (15)
  - Foetal exposure during pregnancy [Unknown]
  - Cyanosis [Unknown]
  - Hypertension [Unknown]
  - Pleural effusion [Unknown]
  - Ventricular septal defect [Unknown]
  - Pulmonary valve stenosis [Unknown]
  - Atrial septal defect [Unknown]
  - Patent ductus arteriosus [Unknown]
  - Wound infection [Unknown]
  - Tricuspid valve incompetence [Unknown]
  - Staphylococcal mediastinitis [Unknown]
  - Renal failure [Unknown]
  - Pneumothorax [Unknown]
  - Respiratory failure [Unknown]
  - Dilatation ventricular [Unknown]
